FAERS Safety Report 13780817 (Version 1)
Quarter: 2017Q3

REPORT INFORMATION
  Report Type: Spontaneous
  Country: US (occurrence: US)
  Receive Date: 20170721
  Receipt Date: 20170721
  Transmission Date: 20171127
  Serious: No
  Sender: FDA-Public Use
  Company Number: None

PATIENT
  Age: 55 Year
  Sex: Female

DRUGS (1)
  1. LATANOPROST. [Suspect]
     Active Substance: LATANOPROST
     Dosage: ?          OTHER DOSE:GTT;?AT BEDTIME OPHTHALMIC
     Route: 047
     Dates: start: 20170527, end: 20170605

REACTIONS (3)
  - Manufacturing product shipping issue [None]
  - Eye irritation [None]
  - Product storage error [None]

NARRATIVE: CASE EVENT DATE: 20170605
